FAERS Safety Report 4450944-X (Version None)
Quarter: 2004Q3

REPORT INFORMATION
  Report Type: 
  Country: None (occurrence: None)
  Receive Date: 20040916
  Receipt Date: 20031117
  Transmission Date: 20050211
  Serious: Yes (Other)
  Sender: FDA-Public Use
  Company Number: US-BRISTOL-MYERS SQUIBB COMPANY-12436713

PATIENT
  Sex: Female

DRUGS (15)
  1. STADOL [Suspect]
  2. ORTHO CYCLEN-28 [Concomitant]
  3. AMITRIPTYLINE HCL [Concomitant]
  4. NORTRIPTYLINE HCL [Concomitant]
  5. IMITREX [Concomitant]
  6. RITALIN [Concomitant]
  7. NARDIL [Concomitant]
  8. KLONOPIN [Concomitant]
  9. SERENTIL [Concomitant]
  10. MIGRANAL [Concomitant]
  11. ALCOHOL [Concomitant]
  12. LIBRIUM [Concomitant]
  13. PROZAC [Concomitant]
  14. LORAZEPAM [Concomitant]
  15. MARIJUANA [Concomitant]

REACTIONS (1)
  - DEPENDENCE [None]
